FAERS Safety Report 5777282-7 (Version None)
Quarter: 2008Q2

REPORT INFORMATION
  Report Type: 
  Country: None (occurrence: None)
  Receive Date: 20080616
  Receipt Date: 20080604
  Transmission Date: 20081010
  Serious: Yes (Death, Hospitalization)
  Sender: FDA-Public Use
  Company Number: 2008AL004934 (1)

PATIENT
  Age: 74 Year
  Sex: Female
  Weight: 72.5755 kg

DRUGS (1)
  1. DIGOXIN [Suspect]
     Dosage: 0.125MG BID 3 DAYS, PO/
     Route: 048
     Dates: start: 20080116

REACTIONS (5)
  - ANOREXIA [None]
  - CORONARY ARTERY DISEASE [None]
  - NAUSEA [None]
  - RETCHING [None]
  - THERAPEUTIC AGENT TOXICITY [None]
